FAERS Safety Report 20847573 (Version 8)
Quarter: 2022Q4

REPORT INFORMATION
  Report Type: Spontaneous
  Country: FR (occurrence: FR)
  Receive Date: 20220519
  Receipt Date: 20221126
  Transmission Date: 20230113
  Serious: Yes (Disabling, Other)
  Sender: FDA-Public Use
  Company Number: FR-ABBVIE-22K-056-4398621-00

PATIENT
  Age: 56 Year
  Sex: Female

DRUGS (14)
  1. DEPAKOTE [Suspect]
     Active Substance: DIVALPROEX SODIUM
     Indication: Bipolar disorder
     Dosage: TOOK 1 DEPAKOTE 500 MG TABLET IN THE MORNING, 1 250 MG TABLETAT NOON AND IN THE EVENING. 2021
     Route: 048
     Dates: start: 2021
  2. DEPAKOTE [Suspect]
     Active Substance: DIVALPROEX SODIUM
     Indication: Bipolar disorder
     Route: 048
  3. DEPAKOTE [Suspect]
     Active Substance: DIVALPROEX SODIUM
     Indication: Bipolar disorder
     Route: 048
  4. DEPAKOTE [Suspect]
     Active Substance: DIVALPROEX SODIUM
     Indication: Bipolar disorder
     Route: 048
  5. DEPAKOTE [Suspect]
     Active Substance: DIVALPROEX SODIUM
     Indication: Bipolar disorder
     Route: 048
     Dates: start: 20220502
  6. FLECAINIDE [Concomitant]
     Active Substance: FLECAINIDE
     Indication: Product used for unknown indication
  7. LORMETAZEPAM [Concomitant]
     Active Substance: LORMETAZEPAM
     Indication: Product used for unknown indication
  8. OXAZEPAM [Concomitant]
     Active Substance: OXAZEPAM
     Indication: Product used for unknown indication
  9. FLECAINIDE [Concomitant]
     Active Substance: FLECAINIDE
     Indication: Ventricular extrasystoles
  10. ABILIFY [Concomitant]
     Active Substance: ARIPIPRAZOLE
     Indication: Product used for unknown indication
  11. ACETAMINOPHEN [Concomitant]
     Active Substance: ACETAMINOPHEN
     Indication: Pain
  12. CODEINE SULFATE [Suspect]
     Active Substance: CODEINE SULFATE
     Indication: Product used for unknown indication
     Route: 065
  13. CALCIUM [Concomitant]
     Active Substance: CALCIUM
     Indication: Product used for unknown indication
  14. TEGRETOL [Concomitant]
     Active Substance: CARBAMAZEPINE
     Indication: Product used for unknown indication

REACTIONS (26)
  - Multiple sclerosis [Not Recovered/Not Resolved]
  - Walking aid user [Not Recovered/Not Resolved]
  - Rhabdomyolysis [Not Recovered/Not Resolved]
  - Hyperparathyroidism primary [Unknown]
  - Pain [Not Recovered/Not Resolved]
  - Ventricular extrasystoles [Unknown]
  - Vein disorder [Unknown]
  - Cardiac disorder [Unknown]
  - Parathyroid disorder [Unknown]
  - Product use complaint [Not Recovered/Not Resolved]
  - Gait inability [Not Recovered/Not Resolved]
  - Intentional product misuse [Unknown]
  - Musculoskeletal stiffness [Not Recovered/Not Resolved]
  - Pain in extremity [Unknown]
  - Hypercalcaemia [Unknown]
  - Myalgia [Not Recovered/Not Resolved]
  - Weight decreased [Recovering/Resolving]
  - Osteoporosis [Unknown]
  - Abdominal pain upper [Not Recovered/Not Resolved]
  - Osteoporosis [Unknown]
  - Weight increased [Unknown]
  - Musculoskeletal stiffness [Not Recovered/Not Resolved]
  - Fracture [Unknown]
  - Bipolar disorder [Unknown]
  - Femoral neck fracture [Unknown]
  - Dysphagia [Not Recovered/Not Resolved]

NARRATIVE: CASE EVENT DATE: 20190101
